FAERS Safety Report 17087826 (Version 2)
Quarter: 2020Q1

REPORT INFORMATION
  Report Type: Spontaneous
  Country: FR (occurrence: FR)
  Receive Date: 20191128
  Receipt Date: 20200130
  Transmission Date: 20200409
  Serious: Yes (Hospitalization)
  Sender: FDA-Public Use
  Company Number: FR-ASTRAZENECA-2019SF66340

PATIENT
  Age: 73 Year
  Sex: Male
  Weight: 88 kg

DRUGS (6)
  1. IMFINZI [Suspect]
     Active Substance: DURVALUMAB
     Indication: BRONCHIAL CARCINOMA
     Route: 042
     Dates: start: 20190318
  2. ATORVASTATIN [Concomitant]
     Active Substance: ATORVASTATIN
     Route: 048
  3. CARDENSIEL [Concomitant]
     Active Substance: BISOPROLOL FUMARATE
     Route: 048
  4. ASPIRINE PROTECT [Concomitant]
     Active Substance: ASPIRIN
     Dosage: 1.0DF UNKNOWN
     Route: 048
  5. ESIDREX [Concomitant]
     Active Substance: HYDROCHLOROTHIAZIDE
     Dosage: 1.0DF UNKNOWN
     Route: 048
  6. ZANEXTRA [Concomitant]
     Active Substance: ENALAPRIL MALEATE\LERCANIDIPINE HYDROCHLORIDE
     Dosage: 20/10MG, 1/DAY
     Route: 048

REACTIONS (3)
  - Renal failure [Not Recovered/Not Resolved]
  - Proteinuria [Not Recovered/Not Resolved]
  - Condition aggravated [Not Recovered/Not Resolved]

NARRATIVE: CASE EVENT DATE: 20190507
